FAERS Safety Report 23202546 (Version 2)
Quarter: 2023Q4

REPORT INFORMATION
  Report Type: Spontaneous
  Country: US (occurrence: US)
  Receive Date: 20231120
  Receipt Date: 20231122
  Transmission Date: 20240110
  Serious: Yes (Death, Life-Threatening, Hospitalization, Other)
  Sender: FDA-Public Use
  Company Number: US-LUPIN PHARMACEUTICALS INC.-2023-10047

PATIENT
  Age: 39 Year
  Sex: Female
  Weight: 59 kg

DRUGS (2)
  1. LAMOTRIGINE [Suspect]
     Active Substance: LAMOTRIGINE
     Indication: Epilepsy
     Dosage: 75 MG
     Route: 065
  2. LAMOTRIGINE [Suspect]
     Active Substance: LAMOTRIGINE
     Dosage: 100 MG
     Route: 065

REACTIONS (11)
  - Mucosal haemorrhage [Fatal]
  - Thyroiditis [Fatal]
  - Cholangitis acute [Fatal]
  - Large intestinal haemorrhage [Fatal]
  - Hepatic necrosis [Fatal]
  - Cardiac failure [Fatal]
  - Ventricular fibrillation [Fatal]
  - Cardiac arrest [Fatal]
  - Eosinophilic myocarditis [Fatal]
  - Hepatic failure [Fatal]
  - Drug reaction with eosinophilia and systemic symptoms [Fatal]
